FAERS Safety Report 24399394 (Version 5)
Quarter: 2025Q3

REPORT INFORMATION
  Report Type: Spontaneous
  Country: US (occurrence: US)
  Receive Date: 20241004
  Receipt Date: 20250921
  Transmission Date: 20251021
  Serious: No
  Sender: SANOFI AVENTIS
  Company Number: US-SA-2024SA285808

PATIENT
  Age: 81 Year
  Sex: Female
  Weight: 81.82 kg

DRUGS (9)
  1. DUPIXENT [Suspect]
     Active Substance: DUPILUMAB
     Indication: Dermatitis atopic
     Dosage: 300 MG, QOW
     Route: 058
     Dates: start: 202408
  2. DUPIXENT [Suspect]
     Active Substance: DUPILUMAB
     Indication: Dermatitis bullous
  3. PREVACID 24 HR [Concomitant]
     Active Substance: LANSOPRAZOLE
     Route: 065
  4. PREDNISONE [Concomitant]
     Active Substance: PREDNISONE
  5. DELZICOL [Concomitant]
     Active Substance: MESALAMINE
     Route: 065
  6. PAXIL [Concomitant]
     Active Substance: PAROXETINE HYDROCHLORIDE
     Route: 065
  7. VAGIFEM [Concomitant]
     Active Substance: ESTRADIOL
     Route: 065
  8. HYZAAR [Concomitant]
     Active Substance: HYDROCHLOROTHIAZIDE\LOSARTAN POTASSIUM
     Route: 065
  9. DOXYCYCLINE HYCLATE [Concomitant]
     Active Substance: DOXYCYCLINE HYCLATE

REACTIONS (11)
  - Bone density abnormal [Unknown]
  - Injection site warmth [Recovered/Resolved]
  - Fatigue [Unknown]
  - Dizziness [Unknown]
  - Skin exfoliation [Unknown]
  - Injection site rash [Unknown]
  - Dry eye [Recovering/Resolving]
  - Injection site erythema [Unknown]
  - Injection site swelling [Recovered/Resolved]
  - Injection site pruritus [Recovered/Resolved]
  - Product use in unapproved indication [Unknown]

NARRATIVE: CASE EVENT DATE: 20240801
